FAERS Safety Report 9773171 (Version 2)
Quarter: 2013Q4

REPORT INFORMATION
  Report Type: Spontaneous
  Country: US (occurrence: US)
  Receive Date: 20131219
  Receipt Date: 20131219
  Transmission Date: 20140711
  Serious: Yes (Other)
  Sender: FDA-Public Use
  Company Number: US-UCBSA-104058

PATIENT
  Sex: Female
  Weight: 54 kg

DRUGS (5)
  1. CIMZIA [Suspect]
     Indication: RHEUMATOID ARTHRITIS
     Dates: start: 20110209, end: 20131010
  2. RELAFAN [Concomitant]
     Indication: RHEUMATOID ARTHRITIS
     Route: 048
  3. ARRAVA [Concomitant]
     Indication: RHEUMATOID ARTHRITIS
     Route: 048
  4. MAXIDE [Concomitant]
     Dosage: 7/50 MG
     Route: 048
  5. TIMOLOL [Concomitant]
     Route: 047

REACTIONS (2)
  - Pulmonary mass [Not Recovered/Not Resolved]
  - Dyspnoea [Unknown]
